FAERS Safety Report 9717443 (Version 1)
Quarter: 2013Q4

REPORT INFORMATION
  Report Type: Not Available
  Country: FR (occurrence: FR)
  Receive Date: 20131127
  Receipt Date: 20131127
  Transmission Date: 20140711
  Serious: Yes (Hospitalization, Other)
  Sender: FDA-Public Use
  Company Number: FR-NAPPMUNDI-GBR-2013-0016395

PATIENT
  Age: 43 Year
  Sex: Female

DRUGS (1)
  1. OXYCONTIN LP, COMPRIME PELLICULE A LIBERATION PROLONGEE [Suspect]
     Indication: PAIN
     Dosage: 10 DF, DAILY

REACTIONS (5)
  - Drug abuse [Unknown]
  - Miosis [Unknown]
  - Tachycardia [Unknown]
  - Agitation [Unknown]
  - Depressed level of consciousness [Unknown]
